FAERS Safety Report 4272837-3 (Version None)
Quarter: 2004Q1

REPORT INFORMATION
  Report Type: 
  Country: None (occurrence: None)
  Receive Date: 20040114
  Receipt Date: 20040105
  Transmission Date: 20041129
  Serious: Yes (Other)
  Sender: FDA-Public Use
  Company Number: 2004000757

PATIENT
  Sex: Male

DRUGS (4)
  1. ZOLOFT (SERTRALINE) [Suspect]
     Indication: ILL-DEFINED DISORDER
     Dates: end: 19990101
  2. REMERON [Suspect]
     Indication: ILL-DEFINED DISORDER
     Dates: start: 20030701
  3. RISPERDAL [Suspect]
     Indication: ILL-DEFINED DISORDER
     Dosage: 0.5 MG (DAILY)
  4. DEPAKOTE [Suspect]
     Indication: ILL-DEFINED DISORDER

REACTIONS (4)
  - INCONTINENCE [None]
  - SINGLE FUNCTIONAL KIDNEY [None]
  - TRISMUS [None]
  - WEIGHT INCREASED [None]
